FAERS Safety Report 7007668-4 (Version None)
Quarter: 2010Q3

REPORT INFORMATION
  Report Type: 
  Country: None (occurrence: None)
  Receive Date: 20100922
  Receipt Date: 20100913
  Transmission Date: 20110219
  Serious: Yes (Other)
  Sender: FDA-Public Use
  Company Number: NO-PFIZER INC-2010115147

PATIENT
  Sex: Male

DRUGS (4)
  1. LIPITOR [Suspect]
     Dosage: UNK
     Dates: start: 20050101
  2. LIPITOR [Suspect]
     Dosage: 40 MG, 1X/DAY
  3. VENTOLIN [Concomitant]
     Indication: CHRONIC OBSTRUCTIVE PULMONARY DISEASE
     Dosage: UNK
  4. SERETIDE [Concomitant]
     Indication: CHRONIC OBSTRUCTIVE PULMONARY DISEASE
     Dosage: UNK

REACTIONS (2)
  - BLOOD CALCIUM ABNORMAL [None]
  - FATIGUE [None]
